FAERS Safety Report 23310117 (Version 1)
Quarter: 2023Q4

REPORT INFORMATION
  Report Type: Report from Study
  Country: DE (occurrence: None)
  Receive Date: 20231218
  Receipt Date: 20231218
  Transmission Date: 20240109
  Serious: Yes (Death)
  Sender: FDA-Public Use
  Company Number: 2023A284875

PATIENT
  Age: 38 Year
  Sex: Male

DRUGS (7)
  1. QUETIAPINE [Suspect]
     Active Substance: QUETIAPINE
     Route: 048
  2. TEMAZEPAM [Suspect]
     Active Substance: TEMAZEPAM
  3. DIAZEPAM [Suspect]
     Active Substance: DIAZEPAM
  4. NORDAZEPAM [Suspect]
     Active Substance: NORDAZEPAM
  5. PREGABALIN [Suspect]
     Active Substance: PREGABALIN
  6. OXAZEPAM [Suspect]
     Active Substance: OXAZEPAM
  7. METHADONE [Suspect]
     Active Substance: METHADONE HYDROCHLORIDE
     Indication: Drug dependence

REACTIONS (3)
  - Cardiac hypertrophy [Fatal]
  - Toxicity to various agents [Fatal]
  - Visceral congestion [Fatal]
